FAERS Safety Report 7142551-5 (Version None)
Quarter: 2010Q4

REPORT INFORMATION
  Report Type: 
  Country: None (occurrence: None)
  Receive Date: 20101207
  Receipt Date: 20101129
  Transmission Date: 20110411
  Serious: Yes (Hospitalization, Other)
  Sender: FDA-Public Use
  Company Number: US-TEVA-183748USA

PATIENT
  Sex: Female
  Weight: 66.738 kg

DRUGS (4)
  1. QUININE SULFATE [Suspect]
     Indication: MUSCLE SPASMS
     Dates: start: 20050818
  2. ZOLPIDEM TARTRATE [Concomitant]
     Indication: INSOMNIA
  3. ESTRADIOL [Concomitant]
     Indication: HOT FLUSH
  4. CLONIDINE [Concomitant]
     Indication: HYPERTENSION

REACTIONS (8)
  - COAGULOPATHY [None]
  - DISSEMINATED INTRAVASCULAR COAGULATION [None]
  - POST-TRAUMATIC STRESS DISORDER [None]
  - RENAL DISORDER [None]
  - RENAL FAILURE [None]
  - RENAL FAILURE ACUTE [None]
  - RESPIRATORY FAILURE [None]
  - SEPTIC SHOCK [None]
